FAERS Safety Report 5591655-7 (Version None)
Quarter: 2008Q1

REPORT INFORMATION
  Report Type: 
  Country: None (occurrence: None)
  Receive Date: 20080115
  Receipt Date: 20071127
  Transmission Date: 20080703
  Serious: Yes (Other)
  Sender: FDA-Public Use
  Company Number: CH-BAYER-200810283GPV

PATIENT
  Age: 42 Year
  Sex: Female
  Weight: 85 kg

DRUGS (2)
  1. ASPIRIN [Suspect]
     Indication: TENSION HEADACHE
     Route: 065
  2. PONSTAN [Suspect]

REACTIONS (4)
  - CHROMATURIA [None]
  - HAEMOGLOBIN DECREASED [None]
  - HAEMOLYTIC ANAEMIA [None]
  - JAUNDICE ACHOLURIC [None]
